FAERS Safety Report 26162327 (Version 1)
Quarter: 2025Q4

REPORT INFORMATION
  Report Type: Report from Study
  Country: CA (occurrence: CA)
  Receive Date: 20251216
  Receipt Date: 20251216
  Transmission Date: 20260118
  Serious: Yes (Other)
  Sender: TAKEDA
  Company Number: CA-TAKEDA-2025TUS056171

PATIENT
  Age: 66 Year
  Sex: Female

DRUGS (4)
  1. VEDOLIZUMAB [Suspect]
     Active Substance: VEDOLIZUMAB
     Indication: Colitis ulcerative
     Dosage: 300 MILLIGRAM
  2. VEDOLIZUMAB [Suspect]
     Active Substance: VEDOLIZUMAB
     Dosage: 300 MILLIGRAM, Q4WEEKS
     Dates: start: 20231205
  3. VEDOLIZUMAB [Suspect]
     Active Substance: VEDOLIZUMAB
     Dosage: 300 MILLIGRAM, Q4WEEKS
  4. Cortiment [Concomitant]
     Dosage: UNK

REACTIONS (20)
  - Haematochezia [Not Recovered/Not Resolved]
  - Pleural effusion [Unknown]
  - Insomnia [Unknown]
  - Sneezing [Unknown]
  - Feeling abnormal [Unknown]
  - Decreased immune responsiveness [Unknown]
  - Drug ineffective [Unknown]
  - Fall [Unknown]
  - Feeding disorder [Unknown]
  - Illness [Unknown]
  - Eye infection [Unknown]
  - Inappropriate schedule of product administration [Unknown]
  - Faeces discoloured [Not Recovered/Not Resolved]
  - Product dose omission issue [Unknown]
  - Ear infection [Unknown]
  - Rhinorrhoea [Unknown]
  - Dyspnoea [Not Recovered/Not Resolved]
  - Asthenia [Not Recovered/Not Resolved]
  - Pharyngitis [Unknown]
  - Fatigue [Not Recovered/Not Resolved]

NARRATIVE: CASE EVENT DATE: 20250601
